FAERS Safety Report 11744457 (Version 3)
Quarter: 2015Q4

REPORT INFORMATION
  Report Type: Spontaneous
  Country: US (occurrence: US)
  Receive Date: 20151116
  Receipt Date: 20151120
  Transmission Date: 20160304
  Serious: Yes (Hospitalization, Other)
  Sender: FDA-Public Use
  Company Number: US-ACTELION-A-US2015-127110

PATIENT
  Age: 64 Year
  Sex: Female

DRUGS (1)
  1. VELETRI [Suspect]
     Active Substance: EPOPROSTENOL
     Indication: PULMONARY ARTERIAL HYPERTENSION
     Dosage: 12 NG/KG, PER MIN
     Route: 042
     Dates: start: 20151016, end: 20151109

REACTIONS (6)
  - Pulmonary oedema [Unknown]
  - Cardiac failure high output [Unknown]
  - Brain natriuretic peptide increased [Unknown]
  - Pleural effusion [Unknown]
  - Fraction of inspired oxygen [Unknown]
  - Drug tolerance decreased [Unknown]
